FAERS Safety Report 16768439 (Version 3)
Quarter: 2019Q4

REPORT INFORMATION
  Report Type: Spontaneous
  Country: LT (occurrence: LT)
  Receive Date: 20190903
  Receipt Date: 20191106
  Transmission Date: 20200122
  Serious: Yes (Hospitalization, Other)
  Sender: FDA-Public Use
  Company Number: LT-MYLANLABS-2019M1081910

PATIENT
  Age: 49 Year
  Sex: Male

DRUGS (7)
  1. RAMIPRIL. [Concomitant]
     Active Substance: RAMIPRIL
     Indication: ESSENTIAL HYPERTENSION
     Dosage: UNK
  2. EFAVIRENZ. [Concomitant]
     Active Substance: EFAVIRENZ
     Indication: PRODUCT USED FOR UNKNOWN INDICATION
     Dosage: UNK
     Dates: start: 20100324, end: 201110
  3. LAMIVUDINE W/ZIDOVUDINE [Concomitant]
     Active Substance: LAMIVUDINE\ZIDOVUDINE
     Indication: PRODUCT USED FOR UNKNOWN INDICATION
     Dosage: UNK
     Dates: start: 20010117, end: 20101018
  4. ABACAVIR SULFATE/LAMIVUDINE [Interacting]
     Active Substance: ABACAVIR SULFATE\LAMIVUDINE
     Dosage: UNK
     Route: 065
     Dates: start: 201010, end: 20160315
  5. ABACAVIR SULFATE/LAMIVUDINE [Suspect]
     Active Substance: ABACAVIR SULFATE\LAMIVUDINE
     Indication: PRODUCT USED FOR UNKNOWN INDICATION
     Dosage: UNK
     Route: 065
     Dates: start: 20100324, end: 201110
  6. METOPROLOL. [Concomitant]
     Active Substance: METOPROLOL
     Indication: ESSENTIAL HYPERTENSION
     Dosage: UNK
  7. LOPINAVIR + RITONAVIR [Concomitant]
     Active Substance: LOPINAVIR\RITONAVIR
     Indication: PRODUCT USED FOR UNKNOWN INDICATION
     Dosage: UNK
     Dates: start: 20010117, end: 20161207

REACTIONS (9)
  - Drug resistance [Unknown]
  - Myalgia [Unknown]
  - Lymph node tuberculosis [Recovered/Resolved]
  - Extrapulmonary tuberculosis [Recovered/Resolved]
  - Immune reconstitution inflammatory syndrome [Unknown]
  - Diarrhoea [Unknown]
  - Pancreatitis [Recovered/Resolved]
  - Viraemia [Recovered/Resolved]
  - Hypoaesthesia [Unknown]

NARRATIVE: CASE EVENT DATE: 201004
